FAERS Safety Report 16150025 (Version 1)
Quarter: 2019Q2

REPORT INFORMATION
  Report Type: Spontaneous
  Country: US (occurrence: US)
  Receive Date: 20190403
  Receipt Date: 20190403
  Transmission Date: 20190711
  Serious: No
  Sender: FDA-Public Use
  Company Number: US-PFIZER INC-2019143279

PATIENT
  Age: 59 Year
  Sex: Female
  Weight: 91 kg

DRUGS (1)
  1. IBRANCE [Suspect]
     Active Substance: PALBOCICLIB
     Indication: NEOPLASM MALIGNANT
     Dosage: 125 MG, CYCLIC (1 CAP DAILY FOR 3 WEEKS AND 1 WEEK OFF)
     Route: 048

REACTIONS (2)
  - Nausea [Recovered/Resolved]
  - Decreased appetite [Unknown]
